FAERS Safety Report 7472398-1 (Version None)
Quarter: 2011Q1

REPORT INFORMATION
  Report Type: 
  Country: None (occurrence: None)
  Receive Date: 20110302
  Receipt Date: 20100719
  Transmission Date: 20110831
  Serious: Yes (Death, Hospitalization, Other)
  Sender: FDA-Public Use
  Company Number: 163-21880-10061002

PATIENT
  Age: 87 Year
  Sex: Male

DRUGS (10)
  1. REVLIMID [Suspect]
     Indication: MULTIPLE MYELOMA
     Dosage: 5 MG, DAILY X 21 DAYS, PO
     Route: 048
     Dates: start: 20090107
  2. MAGNESIUM OXIDE (MAGNESIUM OXIDE) [Concomitant]
  3. MULTIVITAMIN [Concomitant]
  4. FUROSEMIDE [Concomitant]
  5. ASPIRIN [Concomitant]
  6. NORCO [Concomitant]
  7. SEVELAMER (SEVELAMER) [Concomitant]
  8. DEXAMETHASONE [Concomitant]
  9. LEVOTHYROXINE SODIUM [Concomitant]
  10. ACETAMINOPHEN [Concomitant]

REACTIONS (8)
  - OEDEMA PERIPHERAL [None]
  - ATRIAL FIBRILLATION [None]
  - PLATELET COUNT DECREASED [None]
  - CARDIAC FAILURE CONGESTIVE [None]
  - PNEUMONIA [None]
  - FLUID OVERLOAD [None]
  - WOUND ABSCESS [None]
  - CHOLECYSTITIS ACUTE [None]
